FAERS Safety Report 16046629 (Version 2)
Quarter: 2019Q4

REPORT INFORMATION
  Report Type: Spontaneous
  Country: US (occurrence: US)
  Receive Date: 20190307
  Receipt Date: 20191014
  Transmission Date: 20200122
  Serious: Yes (Other)
  Sender: FDA-Public Use
  Company Number: US-SA-2019SA063686

PATIENT
  Age: 33 Year
  Sex: Male

DRUGS (1)
  1. SEVELAMER CARBONATE. [Suspect]
     Active Substance: SEVELAMER CARBONATE

REACTIONS (4)
  - Gastrointestinal haemorrhage [Recovering/Resolving]
  - Rectal ulcer [Recovering/Resolving]
  - Haematochezia [Recovered/Resolved]
  - Crystal deposit intestine [Recovering/Resolving]
